FAERS Safety Report 25602142 (Version 1)
Quarter: 2025Q3

REPORT INFORMATION
  Report Type: Spontaneous
  Country: US (occurrence: None)
  Receive Date: 20250723
  Receipt Date: 20250723
  Transmission Date: 20251021
  Serious: Yes (Other)
  Sender: FDA-CTU
  Company Number: None

PATIENT
  Age: 27 Year
  Sex: Male
  Weight: 135 kg

DRUGS (6)
  1. METHYLPREDNISOLONE [Suspect]
     Active Substance: METHYLPREDNISOLONE
     Indication: Post procedural inflammation
     Route: 048
     Dates: start: 20250708, end: 20250710
  2. AMOXICILLIN [Concomitant]
     Active Substance: AMOXICILLIN
  3. VITAMINS [Concomitant]
     Active Substance: VITAMINS
  4. COLLAGEN [Concomitant]
     Active Substance: COLLAGEN
  5. biotin generic Zertec [Concomitant]
  6. ibuprofen/acetaminophen as needed [Concomitant]

REACTIONS (6)
  - Chest discomfort [None]
  - Dyspnoea [None]
  - Pain [None]
  - Axillary pain [None]
  - Neck pain [None]
  - Back pain [None]

NARRATIVE: CASE EVENT DATE: 20250710
